FAERS Safety Report 13390471 (Version 1)
Quarter: 2017Q1

REPORT INFORMATION
  Report Type: Spontaneous
  Country: US (occurrence: US)
  Receive Date: 20170331
  Receipt Date: 20170331
  Transmission Date: 20170429
  Serious: No
  Sender: FDA-Public Use
  Company Number: US-BAYER-2017-061496

PATIENT
  Age: 4 Year
  Sex: Male

DRUGS (1)
  1. MIRALAX [Suspect]
     Active Substance: POLYETHYLENE GLYCOL 3350
     Dosage: 3 TEASPOONS OF POWDER MIXED WITH 4 OZ WATER AT ONE DOSE
     Route: 048

REACTIONS (1)
  - Circumstance or information capable of leading to medication error [Unknown]
